FAERS Safety Report 23585552 (Version 2)
Quarter: 2024Q1

REPORT INFORMATION
  Report Type: Spontaneous
  Country: CO (occurrence: CO)
  Receive Date: 20240301
  Receipt Date: 20240322
  Transmission Date: 20240409
  Serious: No
  Sender: FDA-Public Use
  Company Number: CO-PFIZER INC-PV202400019718

PATIENT
  Age: 15 Year
  Sex: Male

DRUGS (1)
  1. GENOTROPIN [Suspect]
     Active Substance: SOMATROPIN
     Dosage: 1.6 MG, DAILY
     Route: 058
     Dates: start: 202105

REACTIONS (2)
  - Device mechanical issue [Unknown]
  - Device breakage [Unknown]
